FAERS Safety Report 6115506-7 (Version None)
Quarter: 2009Q1

REPORT INFORMATION
  Report Type: 
  Country: None (occurrence: None)
  Receive Date: 20090313
  Receipt Date: 20090302
  Transmission Date: 20090719
  Serious: Yes (Disabling, Other)
  Sender: FDA-Public Use
  Company Number: US-PFIZER INC-2006145612

PATIENT
  Sex: Female
  Weight: 3.401 kg

DRUGS (3)
  1. XANAX XR [Suspect]
     Indication: ANXIETY
     Route: 064
  2. CYMBALTA [Concomitant]
  3. SEROQUEL [Concomitant]

REACTIONS (3)
  - CYCLIC NEUTROPENIA [None]
  - DRUG EXPOSURE DURING PREGNANCY [None]
  - PREMATURE BABY [None]
